FAERS Safety Report 5041647-1 (Version None)
Quarter: 2006Q2

REPORT INFORMATION
  Report Type: 
  Country: None (occurrence: None)
  Receive Date: 20060601
  Receipt Date: 20060223
  Transmission Date: 20061013
  Serious: No
  Sender: FDA-Public Use
  Company Number: 2006PV009149

PATIENT
  Age: 57 Year
  Sex: Female

DRUGS (7)
  1. BYETTA [Suspect]
     Indication: DIABETES MELLITUS NON-INSULIN-DEPENDENT
     Dosage: SEE IMAGE
     Route: 058
     Dates: start: 20060123, end: 20060219
  2. BYETTA [Suspect]
     Indication: DIABETES MELLITUS NON-INSULIN-DEPENDENT
     Dosage: SEE IMAGE
     Route: 058
     Dates: start: 20060220
  3. ADVAIR DISKUS 100/50 [Suspect]
     Indication: DRUG USE FOR UNKNOWN INDICATION
     Dosage: BID; INH
     Route: 055
     Dates: start: 20060214
  4. GLUCOPHAGE [Concomitant]
  5. ACTOS [Concomitant]
  6. NOVOLOG [Concomitant]
  7. LANTUS [Concomitant]

REACTIONS (5)
  - ABDOMINAL DISTENSION [None]
  - ANOREXIA [None]
  - BLOOD GLUCOSE DECREASED [None]
  - BLOOD GLUCOSE INCREASED [None]
  - NASOPHARYNGITIS [None]
